FAERS Safety Report 18007963 (Version 2)
Quarter: 2020Q3

REPORT INFORMATION
  Report Type: Spontaneous
  Country: CN (occurrence: CN)
  Receive Date: 20200710
  Receipt Date: 20200720
  Transmission Date: 20201103
  Serious: Yes (Hospitalization)
  Sender: FDA-Public Use
  Company Number: CN-CELGENEUS-CHN-20200702652

PATIENT
  Sex: Female

DRUGS (4)
  1. 0.9% SODIUM CHLORIDE INJECTION (NON?PVC) [Concomitant]
     Dosage: 500 MILLILITER
     Route: 041
     Dates: start: 20200309, end: 20200309
  2. 0.9% SODIUM CHLORIDE INJECTION (NON?PVC) [Concomitant]
     Indication: LUNG NEOPLASM MALIGNANT
     Dosage: 100 MILLILITER
     Route: 041
     Dates: start: 20200309, end: 20200309
  3. ABRAXANE [Suspect]
     Active Substance: PACLITAXEL
     Indication: LUNG NEOPLASM MALIGNANT
     Dosage: 160 MILLIGRAM
     Route: 041
     Dates: start: 20200309, end: 20200309
  4. AQUPLA [Suspect]
     Active Substance: NEDAPLATIN
     Indication: LUNG NEOPLASM MALIGNANT
     Dosage: 80 MILLIGRAM
     Route: 041
     Dates: start: 20200309, end: 20200309

REACTIONS (2)
  - Gastrointestinal disorder [Unknown]
  - Myelosuppression [Unknown]
